FAERS Safety Report 4602949-3 (Version None)
Quarter: 2005Q1

REPORT INFORMATION
  Report Type: 
  Country: None (occurrence: None)
  Receive Date: 20050309
  Receipt Date: 20050224
  Transmission Date: 20050727
  Serious: Yes (Hospitalization)
  Sender: FDA-Public Use
  Company Number: BW-BRISTOL-MYERS SQUIBB COMPANY-12877148

PATIENT
  Age: 34 Year
  Sex: Female

DRUGS (4)
  1. STAVUDINE [Suspect]
     Indication: HIV INFECTION
     Dates: start: 20041207
  2. LAMIVUDINE [Suspect]
     Indication: HIV INFECTION
     Dates: start: 20041207
  3. NEVIRAPINE [Suspect]
     Indication: HIV INFECTION
     Route: 048
     Dates: start: 20040916
  4. COMBIVIR [Suspect]
     Indication: HIV INFECTION
     Dosage: ^900 MG^
     Route: 048
     Dates: start: 20040916, end: 20050107

REACTIONS (2)
  - ANAEMIA [None]
  - CARDIAC FAILURE CONGESTIVE [None]
